FAERS Safety Report 7539726-X (Version None)
Quarter: 2011Q2

REPORT INFORMATION
  Report Type: 
  Country: None (occurrence: None)
  Receive Date: 20110610
  Receipt Date: 20110606
  Transmission Date: 20111010
  Serious: Yes (Death, Other)
  Sender: FDA-Public Use
  Company Number: DE-GENZYME-FLUD-1001218

PATIENT
  Age: 4 Year
  Sex: Male

DRUGS (9)
  1. YTTRIUM (90 Y) [Suspect]
     Indication: STEM CELL TRANSPLANT
  2. FLUDARA [Suspect]
     Indication: COMBINED IMMUNODEFICIENCY
     Dosage: 160 MG/M2, UNK
     Route: 065
  3. FLUDARA [Suspect]
     Indication: STEM CELL TRANSPLANT
  4. ANTI-THYMOCYTE GLOBULIN NOS [Suspect]
     Indication: STEM CELL TRANSPLANT
     Dosage: UNK
     Route: 065
  5. INDIUM IN 111 CHLORIDE [Suspect]
     Indication: COMBINED IMMUNODEFICIENCY
     Dosage: 71 +/- 28 MBQ
     Route: 042
  6. INDIUM IN 111 CHLORIDE [Suspect]
     Indication: STEM CELL TRANSPLANT
  7. YTTRIUM (90 Y) [Suspect]
     Indication: COMBINED IMMUNODEFICIENCY
     Dosage: UNK
     Route: 042
  8. CYCLOSPORINE [Concomitant]
     Indication: PROPHYLAXIS AGAINST GRAFT VERSUS HOST DISEASE
     Route: 065
  9. ANTI-THYMOCYTE GLOBULIN NOS [Suspect]
     Indication: COMBINED IMMUNODEFICIENCY

REACTIONS (3)
  - TRANSPLANT FAILURE [None]
  - PNEUMONITIS [None]
  - GRAFT VERSUS HOST DISEASE [None]
